FAERS Safety Report 7131652-3 (Version None)
Quarter: 2010Q4

REPORT INFORMATION
  Report Type: 
  Country: None (occurrence: None)
  Receive Date: 20101201
  Receipt Date: 20101122
  Transmission Date: 20110411
  Serious: Yes (Death)
  Sender: FDA-Public Use
  Company Number: DE-ABBOTT-10P-062-0687873-00

PATIENT
  Age: 73 Year
  Sex: Male

DRUGS (2)
  1. LEUPRORELIN DEPOT (6M) [Suspect]
     Indication: PROSTATE CANCER
     Route: 058
     Dates: start: 20100428
  2. PROKAVIT [Concomitant]
     Indication: PRODUCT USED FOR UNKNOWN INDICATION
     Route: 048
     Dates: start: 20091204

REACTIONS (1)
  - DEATH [None]
